FAERS Safety Report 7814543-1 (Version None)
Quarter: 2011Q4

REPORT INFORMATION
  Report Type: 
  Country: None (occurrence: None)
  Receive Date: 20111014
  Receipt Date: 20111011
  Transmission Date: 20120403
  Serious: No
  Sender: FDA-Public Use
  Company Number: US-TEVA-304832USA

PATIENT
  Sex: Female

DRUGS (2)
  1. HIGH BLOOD PRESSURE MEDS [Concomitant]
  2. PROAIR HFA [Suspect]
     Indication: EMPHYSEMA
     Route: 058

REACTIONS (2)
  - DYSPNOEA [None]
  - CHEST DISCOMFORT [None]
